FAERS Safety Report 8343414-X (Version None)
Quarter: 2012Q2

REPORT INFORMATION
  Report Type: 
  Country: None (occurrence: None)
  Receive Date: 20120508
  Receipt Date: 20100506
  Transmission Date: 20120825
  Serious: Yes (Other)
  Sender: FDA-Public Use
  Company Number: US-TEVA-2010002272

PATIENT
  Sex: Male
  Weight: 86.9 kg

DRUGS (2)
  1. ZOLPIDEM [Concomitant]
     Indication: INSOMNIA
  2. TREANDA [Suspect]
     Indication: MANTLE CELL LYMPHOMA
     Route: 042
     Dates: start: 20100209

REACTIONS (1)
  - PLATELET COUNT DECREASED [None]
